FAERS Safety Report 7867088-7 (Version None)
Quarter: 2011Q4

REPORT INFORMATION
  Report Type: 
  Country: None (occurrence: None)
  Receive Date: 20111028
  Receipt Date: 20111017
  Transmission Date: 20120403
  Serious: Yes (Hospitalization)
  Sender: FDA-Public Use
  Company Number: FR-BRISTOL-MYERS SQUIBB COMPANY-16176174

PATIENT
  Age: 36 Year
  Sex: Female

DRUGS (3)
  1. KLOR-CON [Concomitant]
  2. HYDROCHLOROTHIAZIDE [Concomitant]
  3. COUMADIN [Suspect]
     Indication: PULMONARY EMBOLISM
     Dosage: DRUG INTERRUPTED AND RESTARTED
     Route: 048
     Dates: start: 20110201

REACTIONS (2)
  - RESPIRATORY DISTRESS [None]
  - HAEMOPTYSIS [None]
